FAERS Safety Report 9099908 (Version 1)
Quarter: 2013Q1

REPORT INFORMATION
  Report Type: Spontaneous
  Country: GB (occurrence: GB)
  Receive Date: 20130214
  Receipt Date: 20130214
  Transmission Date: 20140127
  Serious: Yes (Life-Threatening, Other)
  Sender: FDA-Public Use
  Company Number: GB-PFIZER INC-2013054444

PATIENT
  Age: 74 Year
  Sex: Female

DRUGS (2)
  1. SOLU-CORTEF [Suspect]
     Dosage: 12.5-15MG DAILY ALTERNATING
  2. GAMMANORM [Suspect]
     Indication: SYSTEMIC MYCOSIS
     Dosage: UNK

REACTIONS (2)
  - Bronchospasm [Unknown]
  - Diabetes mellitus [Unknown]
